FAERS Safety Report 5492218-4 (Version None)
Quarter: 2007Q4

REPORT INFORMATION
  Report Type: 
  Country: None (occurrence: None)
  Receive Date: 20071022
  Receipt Date: 20071015
  Transmission Date: 20080405
  Serious: Yes (Other)
  Sender: FDA-Public Use
  Company Number: FR-ASTRAZENECA-2007CG01479

PATIENT
  Sex: Male

DRUGS (1)
  1. INEXIUM [Suspect]
     Route: 048

REACTIONS (1)
  - APLASIA [None]
